FAERS Safety Report 16974598 (Version 1)
Quarter: 2019Q4

REPORT INFORMATION
  Report Type: Spontaneous
  Country: US (occurrence: US)
  Receive Date: 20191030
  Receipt Date: 20191030
  Transmission Date: 20200122
  Serious: Yes (Hospitalization)
  Sender: FDA-Public Use
  Company Number: US-MYLANLABS-2019M1102745

PATIENT
  Age: 63 Year
  Sex: Male

DRUGS (1)
  1. HEPARIN [Suspect]
     Active Substance: HEPARIN SODIUM
     Indication: CARDIAC VENTRICULAR THROMBOSIS
     Dosage: UNK
     Route: 065

REACTIONS (3)
  - Condition aggravated [Recovered/Resolved]
  - Splenic haematoma [Recovered/Resolved]
  - Splenic rupture [Recovered/Resolved]
